FAERS Safety Report 10003641 (Version 1)
Quarter: 2014Q1

REPORT INFORMATION
  Report Type: Spontaneous
  Country: US (occurrence: US)
  Receive Date: 20140312
  Receipt Date: 20140312
  Transmission Date: 20141002
  Serious: No
  Sender: FDA-Public Use
  Company Number: US-ABBVIE-13P-163-1090373-00

PATIENT
  Age: 41 Year
  Sex: Male
  Weight: 118.04 kg

DRUGS (6)
  1. DEPAKOTE [Suspect]
     Indication: BIPOLAR DISORDER
     Dosage: ONE IN AM AND  TWO IN  PM
     Route: 048
  2. INVEGA [Concomitant]
     Indication: BIPOLAR DISORDER
  3. METFORMIN [Concomitant]
     Indication: DIABETES MELLITUS
  4. BISOPROLOL [Concomitant]
     Indication: PRODUCT USED FOR UNKNOWN INDICATION
  5. COGENTIN [Concomitant]
     Indication: ADVERSE EVENT
  6. COGENTIN [Concomitant]
     Indication: PROPHYLAXIS

REACTIONS (1)
  - Medication residue present [Not Recovered/Not Resolved]
